FAERS Safety Report 16416106 (Version 4)
Quarter: 2019Q3

REPORT INFORMATION
  Report Type: Report from Study
  Country: None (occurrence: IT)
  Receive Date: 20190611
  Receipt Date: 20190731
  Transmission Date: 20191004
  Serious: Yes (Hospitalization, Other)
  Sender: FDA-Public Use
  Company Number: IT-ABBVIE-19S-083-2815875-00

PATIENT
  Age: 73 Year
  Sex: Female

DRUGS (1)
  1. DUODOPA [Suspect]
     Active Substance: CARBIDOPA\LEVODOPA
     Indication: PARKINSON^S DISEASE
     Dosage: MD: 1+3 CR: 3,5 ED: 3
     Route: 050
     Dates: start: 20141001

REACTIONS (2)
  - Embedded device [Unknown]
  - Stoma complication [Unknown]

NARRATIVE: CASE EVENT DATE: 20190626
